FAERS Safety Report 24799270 (Version 1)
Quarter: 2025Q1

REPORT INFORMATION
  Report Type: Spontaneous
  Country: US (occurrence: US)
  Receive Date: 20250102
  Receipt Date: 20250102
  Transmission Date: 20250409
  Serious: Yes (Other)
  Sender: AUROBINDO
  Company Number: US-MLMSERVICE-20241211-PI292701-00177-1

PATIENT
  Age: 25 Year
  Sex: Female

DRUGS (2)
  1. HYDROCORTISONE [Suspect]
     Active Substance: HYDROCORTISONE
     Indication: Adrenocortical insufficiency acute
     Dosage: 2.5 MILLIGRAM, 3 TIMES A DAY (8.6 MG/M2/DAY)
     Route: 065
  2. FLUDROCORTISONE [Suspect]
     Active Substance: FLUDROCORTISONE
     Indication: Adrenocortical insufficiency acute
     Dosage: 0.05 MILLIGRAM, ONCE A DAY
     Route: 065

REACTIONS (1)
  - Steroid diabetes [Recovering/Resolving]
